FAERS Safety Report 8956347 (Version 1)
Quarter: 2012Q4

REPORT INFORMATION
  Report Type: 
  Country: JP (occurrence: JP)
  Receive Date: 20121210
  Receipt Date: 20121210
  Transmission Date: 20130627
  Serious: Yes (Death, Other)
  Sender: FDA-Public Use
  Company Number: JP-ELI_LILLY_AND_COMPANY-JP201212001931

PATIENT
  Age: 60 Year
  Sex: Male
  Weight: 54.8 kg

DRUGS (5)
  1. GEMZAR [Suspect]
     Indication: GALLBLADDER CANCER STAGE IV
     Dosage: 1590 mg, UNK
     Route: 042
     Dates: start: 20090623, end: 20100316
  2. GEMZAR [Suspect]
     Dosage: 1550 mg, UNK
     Route: 042
     Dates: start: 20100816
  3. CISPLATIN [Concomitant]
     Indication: GALLBLADDER CANCER STAGE IV
     Dosage: 39 mg, UNK
     Route: 042
     Dates: start: 20100816
  4. TS 1 [Concomitant]
     Indication: GALLBLADDER CANCER STAGE IV
     Dosage: 20 mg, UNK
     Route: 048
     Dates: start: 20100330, end: 20100726
  5. MAGMITT [Concomitant]
     Indication: CONSTIPATION
     Dosage: 330 mg, tid
     Route: 048
     Dates: start: 20100831

REACTIONS (4)
  - Malignant neoplasm progression [Fatal]
  - Jaundice [Unknown]
  - Neutrophil count decreased [Recovered/Resolved]
  - Platelet count decreased [Recovered/Resolved]
